FAERS Safety Report 9198978 (Version 3)
Quarter: 2013Q2

REPORT INFORMATION
  Report Type: Spontaneous
  Country: US (occurrence: None)
  Receive Date: 20130325
  Receipt Date: 20130409
  Transmission Date: 20140414
  Serious: No
  Sender: FDA-Public Use
  Company Number: 2013US-004583

PATIENT
  Age: 78 Year
  Sex: Female
  Weight: 103.5 kg

DRUGS (13)
  1. OMONTYS (PEGINESATIDE) SOLUTION FOR INJECTION [Suspect]
     Indication: NEPHROGENIC ANAEMIA
     Route: 042
     Dates: start: 20130209, end: 20130209
  2. RENAL VITAMINS [Concomitant]
  3. METOPROLOL [Concomitant]
  4. RENVELA (SEVELAMER CARBONATE) [Concomitant]
  5. EPOGEN (EPOETIN ALFA) [Concomitant]
  6. NEPHRO WITH CARB STEADY [Concomitant]
  7. VENOFER (SACCHARATED IRON OXIDE) [Concomitant]
  8. ZEMPLAR (PARICALCITOL) [Concomitant]
  9. HEPARIN [Concomitant]
  10. CATHFLO ACTIVASE (ALTEPLASE) [Concomitant]
  11. ERGOCALCIFEROL [Concomitant]
  12. FOLIC ACID W/VIATIMIN B COMPLEX [Concomitant]
  13. PANTOPRAZOLE [Concomitant]

REACTIONS (9)
  - Hypotension [None]
  - Dyspnoea [None]
  - Heart rate increased [None]
  - Hypertension [None]
  - Drug hypersensitivity [None]
  - Vision blurred [None]
  - Tremor [None]
  - Malaise [None]
  - Feeling cold [None]
